FAERS Safety Report 9461451 (Version 1)
Quarter: 2013Q3

REPORT INFORMATION
  Report Type: Report from Study
  Country: MX (occurrence: MX)
  Receive Date: 20130816
  Receipt Date: 20130816
  Transmission Date: 20140515
  Serious: Yes (Other)
  Sender: FDA-Public Use
  Company Number: PHHY2013MX085619

PATIENT
  Age: 64 Year
  Sex: Female

DRUGS (8)
  1. EXELON PATCH [Suspect]
     Indication: DEMENTIA ALZHEIMER^S TYPE
     Dosage: 4.6 MG, (5 CM2) DAILY
     Route: 062
     Dates: start: 201209, end: 2013
  2. ENALAPRIL [Concomitant]
     Dosage: 2 DF, DAILY
     Dates: start: 201001
  3. RANITIDIN [Concomitant]
     Dosage: 2 DF, DAILY
     Dates: start: 201101
  4. AMLODIPINE [Concomitant]
     Dosage: 1 DF, DAILY
     Dates: start: 201001
  5. FLUOXETIN [Concomitant]
     Dosage: 1 DF, DAILY
     Dates: start: 200801
  6. SULINDAC [Concomitant]
     Dosage: 2 DF,DAILY
     Dates: start: 201201
  7. NAPROXEN [Concomitant]
     Dosage: 3 DF, DAILY
     Dates: start: 201201
  8. PRAVASTATIN [Concomitant]
     Dosage: 2 DF, DAILY
     Dates: start: 2011

REACTIONS (7)
  - Multiple fractures [Recovered/Resolved]
  - Fall [Recovered/Resolved]
  - Self injurious behaviour [Not Recovered/Not Resolved]
  - Feeling abnormal [Not Recovered/Not Resolved]
  - Wrong technique in drug usage process [Unknown]
  - Incorrect drug administration duration [Unknown]
  - Gait disturbance [Not Recovered/Not Resolved]
